FAERS Safety Report 10160199 (Version 3)
Quarter: 2014Q2

REPORT INFORMATION
  Report Type: Report from Study
  Country: JM (occurrence: JM)
  Receive Date: 20140508
  Receipt Date: 20140624
  Transmission Date: 20141212
  Serious: Yes (Death, Other)
  Sender: FDA-Public Use
  Company Number: PHHY2014JM055266

PATIENT
  Age: 68 Year
  Sex: Male

DRUGS (2)
  1. GLIVEC [Suspect]
     Indication: CHRONIC MYELOID LEUKAEMIA
     Dosage: 400 MG, UNK
     Route: 048
     Dates: end: 20140427
  2. EPILIM [Concomitant]
     Dosage: UNK UKN, UNK

REACTIONS (6)
  - Pulmonary embolism [Fatal]
  - Dyspnoea [Fatal]
  - Plasma cell myeloma [Unknown]
  - Plasmacytoma [Unknown]
  - Second primary malignancy [Unknown]
  - Dysstasia [Unknown]
